FAERS Safety Report 13609407 (Version 2)
Quarter: 2017Q2

REPORT INFORMATION
  Report Type: Spontaneous
  Country: US (occurrence: US)
  Receive Date: 20170602
  Receipt Date: 20170605
  Transmission Date: 20170830
  Serious: No
  Sender: FDA-Public Use
  Company Number: US-PFIZER INC-2885301

PATIENT
  Age: 64 Year
  Sex: Female
  Weight: 46.3 kg

DRUGS (1)
  1. KETOROLAC TROMETHAMINE. [Suspect]
     Active Substance: KETOROLAC TROMETHAMINE
     Indication: MUSCLE SPASMS
     Dosage: ONCE, NJECTION IN BUTT
     Route: 050
     Dates: start: 20150309, end: 20150309

REACTIONS (6)
  - Musculoskeletal stiffness [Recovering/Resolving]
  - Poor quality drug administered [Recovering/Resolving]
  - Inflammation [Recovering/Resolving]
  - Inflammation [Recovering/Resolving]
  - Product quality issue [Recovering/Resolving]
  - Mobility decreased [Recovering/Resolving]

NARRATIVE: CASE EVENT DATE: 2015
